FAERS Safety Report 7821820-7 (Version None)
Quarter: 2011Q4

REPORT INFORMATION
  Report Type: 
  Country: None (occurrence: None)
  Receive Date: 20111018
  Receipt Date: 20110419
  Transmission Date: 20120403
  Serious: No
  Sender: FDA-Public Use
  Company Number: US-ASTRAZENECA-2010SE58310

PATIENT
  Sex: Male

DRUGS (4)
  1. HIGH BLOOD PRESSURE MED [Concomitant]
  2. ANXIETY MED [Concomitant]
  3. ALBUTEROL [Concomitant]
     Indication: INHALATION THERAPY
     Route: 055
  4. SYMBICORT [Suspect]
     Indication: CHRONIC OBSTRUCTIVE PULMONARY DISEASE
     Dosage: 160-4.5 MCG BID
     Route: 055
     Dates: start: 20080101

REACTIONS (3)
  - DYSPNOEA [None]
  - SLEEP DISORDER DUE TO GENERAL MEDICAL CONDITION, INSOMNIA TYPE [None]
  - DRUG DOSE OMISSION [None]
